FAERS Safety Report 8458442 (Version 4)
Quarter: 2012Q4

REPORT INFORMATION
  Report Type: Spontaneous
  Country: BR (occurrence: None)
  Receive Date: 20120307
  Receipt Date: 20121130
  Transmission Date: 20130627
  Serious: Yes (Other)
  Sender: FDA-Public Use
  Company Number: DSJ-2012-03711

PATIENT
  Age: 54 Year
  Sex: Female

DRUGS (7)
  1. BENICAR HCT [Suspect]
     Indication: HYPERTENSION
     Dosage: 20/12.5 MG (1 IN 1 D), PER ORAL
     Route: 048
     Dates: start: 2005
  2. BENICAR [Suspect]
     Indication: HYPERTENSION
     Dosage: 40 MG (40 MG, 1 IN 1 D), PER ORAL
     Route: 048
     Dates: end: 201209
  3. CAPTOPRIL [Suspect]
     Indication: HYPERTENSION
     Dosage: PER ORAL
     Route: 048
  4. HYDROXYCHLOROQUINE SULFATE [Suspect]
     Indication: LUPUS VULGARIS
     Dosage: 400 MG, PER ORAL
     Route: 048
     Dates: start: 2010
  5. LEVOTHYROXINE SODIUM [Concomitant]
  6. CLOXAZOLAM (CLOXAZOLAM) (CLOXAZOLAM) [Concomitant]
  7. SIMVASTATIN (SIMVASTATIN) (SIMVASTATIN) [Concomitant]

REACTIONS (14)
  - Nausea [None]
  - Vomiting [None]
  - Malaise [None]
  - Drug ineffective [None]
  - Blood pressure systolic increased [None]
  - Cough [None]
  - Overdose [None]
  - Gastritis erosive [None]
  - Gastrooesophageal reflux disease [None]
  - Alopecia [None]
  - Cataract [None]
  - Hypermetropia [None]
  - Influenza [None]
  - Lupus vulgaris [None]
